FAERS Safety Report 20110228 (Version 3)
Quarter: 2021Q4

REPORT INFORMATION
  Report Type: Report from Study
  Country: US (occurrence: US)
  Receive Date: 20211124
  Receipt Date: 20211214
  Transmission Date: 20220303
  Serious: Yes (Hospitalization)
  Sender: FDA-Public Use
  Company Number: US-PFIZER INC-202101649074

PATIENT
  Age: 59 Year
  Sex: Female
  Weight: 81.8 kg

DRUGS (14)
  1. BINIMETINIB [Suspect]
     Active Substance: BINIMETINIB
     Indication: Mucinous adenocarcinoma of appendix
     Dosage: 30 MG,1 IN 0.5 D CYCLE 1 - 2
     Route: 048
     Dates: start: 20211027, end: 20211112
  2. FUTIBATINIB [Suspect]
     Active Substance: FUTIBATINIB
     Indication: Mucinous adenocarcinoma of appendix
     Dosage: 16 MG,1 IN 1 D CYCLE 1- 2
     Route: 048
     Dates: start: 20211005, end: 20211112
  3. ALPRAZOLAM [Concomitant]
     Active Substance: ALPRAZOLAM
     Indication: Anxiety
     Dosage: 3 MG (1 MG,1 IN 8 HR)
     Route: 048
     Dates: start: 20181112
  4. MIRABEGRON [Concomitant]
     Active Substance: MIRABEGRON
     Indication: Urinary incontinence
     Dosage: NI (50 MG)
     Route: 048
     Dates: start: 20211125
  5. OLANZAPINE [Concomitant]
     Active Substance: OLANZAPINE
     Indication: Nausea
     Dosage: 10 MG (10 MG,1 IN 1 D)
     Route: 048
     Dates: start: 20210225
  6. ROSUVASTATIN [Concomitant]
     Active Substance: ROSUVASTATIN
     Indication: Hyperlipidaemia
     Dosage: 10 MG (10 MG,1 IN 1 D)
     Route: 048
     Dates: start: 20140806
  7. GRANISETRON [Concomitant]
     Active Substance: GRANISETRON
     Indication: Hypothyroidism
     Dosage: PATCH (3.1 MG,1 IN 7 D)
     Route: 061
     Dates: start: 20210712
  8. LEVOTHYROXINE [Concomitant]
     Active Substance: LEVOTHYROXINE
     Indication: Hypothyroidism
     Dosage: 50 MCG (50 MCG,1 IN 1 D)
     Route: 048
     Dates: start: 20170105
  9. VERAPAMIL [Concomitant]
     Active Substance: VERAPAMIL HYDROCHLORIDE
     Indication: Hypertension
     Dosage: 180 MG (180 MG,1 IN 1 D)
     Route: 048
     Dates: start: 20181107
  10. LIDOCAINE [Concomitant]
     Active Substance: LIDOCAINE
     Indication: Pain management
     Dosage: TOPICAL PATCH (AS REQUIRED)
     Route: 061
     Dates: start: 20170214
  11. MIRALAX [Concomitant]
     Active Substance: POLYETHYLENE GLYCOL 3350
     Indication: Constipation
     Dosage: 17 GM (17 GM,1 IN 1 D)
     Route: 048
     Dates: start: 20190115
  12. APIXABAN [Concomitant]
     Active Substance: APIXABAN
     Indication: Pulmonary embolism
     Dosage: 10 MG (5 MG,1 IN 0.5 D)
     Route: 048
     Dates: start: 20191223
  13. CYMBALTA [Concomitant]
     Active Substance: DULOXETINE HYDROCHLORIDE
     Indication: Depression
     Dosage: 120 MG (120 MG,1 IN 1 D)
     Route: 048
     Dates: start: 20181107
  14. BUPROPION [Concomitant]
     Active Substance: BUPROPION
     Indication: Depression
     Dosage: 300 MG (300 MG,1 IN 1 D)
     Route: 048
     Dates: start: 20201104

REACTIONS (3)
  - Abdominal distension [Recovered/Resolved]
  - Nausea [Recovered/Resolved]
  - Vomiting [Recovered/Resolved]

NARRATIVE: CASE EVENT DATE: 20211114
